FAERS Safety Report 5098667-0 (Version None)
Quarter: 2006Q3

REPORT INFORMATION
  Report Type: 
  Country: None (occurrence: None)
  Receive Date: 20060905
  Receipt Date: 20060824
  Transmission Date: 20061208
  Serious: Yes (Hospitalization)
  Sender: FDA-Public Use
  Company Number: HQWYE029123MAR04

PATIENT
  Age: 68 Year
  Sex: Male
  Weight: 76.1 kg

DRUGS (11)
  1. MYLOTARG [Suspect]
     Indication: ACUTE MYELOID LEUKAEMIA
     Dosage: SEE IMAGE
     Route: 042
     Dates: start: 20040312, end: 20040312
  2. MYLOTARG [Suspect]
     Indication: ACUTE MYELOID LEUKAEMIA
     Dosage: SEE IMAGE
     Route: 042
     Dates: start: 20040319, end: 20040319
  3. CYTARABINE [Suspect]
     Indication: ACUTE MYELOID LEUKAEMIA
     Dosage: 10, 800 MG DAILY, INTRAVENOUS
     Route: 042
     Dates: start: 20040312
  4. CANCIDAS [Suspect]
  5. FLUCONAZOLE [Suspect]
  6. VANCOMYCIN [Concomitant]
  7. CEFTAZIDIME (CEFTAZIDIME) [Concomitant]
  8. ALBUTEROL [Concomitant]
  9. MULTIVITAMINS (ASCORBIC ACID/ERGOCACIFEROL/FOLIC ACID/NICOTINAMIDE/PAT [Concomitant]
  10. ALLOPURINOL [Suspect]
  11. PRAVASTATIN [Concomitant]

REACTIONS (6)
  - ALANINE AMINOTRANSFERASE INCREASED [None]
  - ASPARTATE AMINOTRANSFERASE INCREASED [None]
  - BLOOD ALKALINE PHOSPHATASE INCREASED [None]
  - CLOSTRIDIUM COLITIS [None]
  - ENTEROCOCCAL INFECTION [None]
  - FEBRILE NEUTROPENIA [None]
